FAERS Safety Report 5973101-4 (Version None)
Quarter: 2008Q4

REPORT INFORMATION
  Report Type: 
  Country: None (occurrence: None)
  Receive Date: 20081201
  Receipt Date: 20081118
  Transmission Date: 20090506
  Serious: Yes (Other)
  Sender: FDA-Public Use
  Company Number: US-ROCHE-588498

PATIENT
  Sex: Female
  Weight: 58.5 kg

DRUGS (3)
  1. CAPECITABINE [Suspect]
     Indication: BREAST CANCER
     Route: 048
     Dates: start: 20080818
  2. VYTORIN [Concomitant]
     Dosage: DRUG: VITORIN
  3. LISINOPRIL [Concomitant]

REACTIONS (1)
  - DISEASE PROGRESSION [None]
